FAERS Safety Report 7621693-1 (Version None)
Quarter: 2011Q3

REPORT INFORMATION
  Report Type: 
  Country: None (occurrence: None)
  Receive Date: 20110719
  Receipt Date: 20110715
  Transmission Date: 20111222
  Serious: No
  Sender: FDA-Public Use
  Company Number: US-MERCK-1101USA00639

PATIENT
  Age: 39 Year
  Sex: Male
  Weight: 84 kg

DRUGS (18)
  1. ISENTRESS [Suspect]
     Route: 048
     Dates: start: 20110101
  2. VIRAMUNE [Concomitant]
     Route: 065
     Dates: start: 20080601
  3. FLOMAX [Concomitant]
     Route: 065
  4. DIAZEPAN [Concomitant]
     Route: 065
  5. FLEXERIL [Concomitant]
     Route: 048
  6. EPZICOM [Concomitant]
     Route: 065
     Dates: start: 20080601
  7. FENOFIBRATE [Concomitant]
     Route: 065
  8. ZOFRAN [Concomitant]
     Route: 065
  9. ISENTRESS [Suspect]
     Indication: HIV INFECTION
     Route: 048
     Dates: start: 20080601, end: 20110101
  10. LOVAZA [Concomitant]
     Route: 065
  11. CARDURA [Concomitant]
     Route: 065
  12. PRAVASTATIN SODIUM [Concomitant]
     Route: 065
  13. OPANA [Concomitant]
     Route: 065
  14. DILAUDID [Concomitant]
     Route: 065
  15. ANDROGEL [Concomitant]
     Route: 065
  16. EFFEXOR [Concomitant]
     Route: 065
  17. SEROQUEL [Concomitant]
     Route: 065
  18. PRAVACHOL [Concomitant]
     Route: 065

REACTIONS (2)
  - PARANOIA [None]
  - HALLUCINATION, AUDITORY [None]
